FAERS Safety Report 5772988-8 (Version None)
Quarter: 2008Q2

REPORT INFORMATION
  Report Type: 
  Country: None (occurrence: None)
  Receive Date: 20080613
  Receipt Date: 20080603
  Transmission Date: 20081010
  Serious: Yes (Hospitalization, Disabling, Other)
  Sender: FDA-Public Use
  Company Number: US-PFIZER INC-2008047579

PATIENT
  Sex: Female
  Weight: 77.272 kg

DRUGS (7)
  1. PROCARDIA XL [Suspect]
     Indication: PULMONARY ARTERIAL HYPERTENSION
     Dates: start: 20010101, end: 20070801
  2. PROCARDIA XL [Suspect]
  3. PROCARDIA XL [Suspect]
  4. REVATIO [Suspect]
     Indication: PULMONARY ARTERIAL HYPERTENSION
     Dates: start: 20070801, end: 20071101
  5. REVATIO [Suspect]
     Dates: start: 20071101, end: 20071101
  6. REVATIO [Suspect]
  7. COUMADIN [Concomitant]
     Dosage: DAILY DOSE:7MG

REACTIONS (4)
  - ASTHENIA [None]
  - DIZZINESS [None]
  - DYSPNOEA [None]
  - MEDICATION RESIDUE [None]
